FAERS Safety Report 6402437-8 (Version None)
Quarter: 2009Q4

REPORT INFORMATION
  Report Type: 
  Country: None (occurrence: None)
  Receive Date: 20091015
  Receipt Date: 20091007
  Transmission Date: 20100525
  Serious: Yes (Hospitalization)
  Sender: FDA-Public Use
  Company Number: US-ELI_LILLY_AND_COMPANY-US200908003369

PATIENT
  Sex: Female

DRUGS (14)
  1. HUMALOG [Suspect]
     Dosage: UNK, UNK
     Dates: start: 20020101
  2. HUMALOG [Suspect]
  3. LEVOTHYROXINE SODIUM [Concomitant]
     Dosage: 200 MG, UNKNOWN
  4. PROTONIX [Concomitant]
     Dosage: 40 MG, UNKNOWN
  5. CALCITRIOL [Concomitant]
     Dosage: 0.25 MG, DAILY (1/D)
  6. POTASSIUM CHLORIDE [Concomitant]
     Dosage: 20 MEQ, UNKNOWN
  7. MAGNESIUM OXIDE [Concomitant]
     Dosage: 400 MG, UNKNOWN
  8. CALCIUM CITRATE WITH VITAMIN D [Concomitant]
     Dosage: 4 D/F, DAILY (1/D)
  9. ONDANSETRON [Concomitant]
     Dosage: 4 MG, 2/D
  10. HYDROCODONE [Concomitant]
  11. FLUOXETINE HCL [Concomitant]
     Dosage: 40 MG, 2/D
  12. TAMOXIFEN CITRATE [Concomitant]
     Dosage: 40 MG, 2/D
  13. CELEBREX [Concomitant]
     Dosage: 200 MG, 2/D
  14. LANTUS [Concomitant]

REACTIONS (3)
  - ADENOMATOUS POLYPOSIS COLI [None]
  - DRUG DISPENSING ERROR [None]
  - NEOPLASM MALIGNANT [None]
